FAERS Safety Report 5470173-0 (Version None)
Quarter: 2007Q3

REPORT INFORMATION
  Report Type: 
  Country: None (occurrence: None)
  Receive Date: 20070924
  Receipt Date: 20070920
  Transmission Date: 20080115
  Serious: Yes (Other)
  Sender: FDA-Public Use
  Company Number: 070097

PATIENT
  Age: 66 Year
  Sex: Female
  Weight: 50.8029 kg

DRUGS (1)
  1. HALFLYTELY [Suspect]
     Indication: COLONOSCOPY
     Dosage: 20 MG, 1X, PO
     Route: 048
     Dates: start: 20070702

REACTIONS (6)
  - ABASIA [None]
  - ABDOMINAL PAIN [None]
  - ANKLE FRACTURE [None]
  - FALL [None]
  - NAUSEA [None]
  - SYNCOPE [None]
